FAERS Safety Report 8503756-1 (Version None)
Quarter: 2012Q3

REPORT INFORMATION
  Report Type: 
  Country: None (occurrence: None)
  Receive Date: 20120711
  Receipt Date: 20120706
  Transmission Date: 20120928
  Serious: Yes (Hospitalization)
  Sender: FDA-Public Use
  Company Number: CA-ABBOTT-12P-028-0946655-00

PATIENT
  Sex: Male
  Weight: 115 kg

DRUGS (2)
  1. PREDNISONE [Concomitant]
     Indication: PRODUCT USED FOR UNKNOWN INDICATION
  2. HUMIRA [Suspect]
     Indication: COLITIS ULCERATIVE
     Route: 058
     Dates: start: 20120215, end: 20120427

REACTIONS (6)
  - RENAL FAILURE [None]
  - PRERENAL FAILURE [None]
  - CLOSTRIDIAL INFECTION [None]
  - COLITIS [None]
  - RENAL TUBULAR NECROSIS [None]
  - DEHYDRATION [None]
